FAERS Safety Report 9692710 (Version 1)
Quarter: 2013Q4

REPORT INFORMATION
  Report Type: Spontaneous
  Country: US (occurrence: None)
  Receive Date: 20131115
  Receipt Date: 20131115
  Transmission Date: 20140711
  Serious: Yes (Hospitalization)
  Sender: FDA-Public Use
  Company Number: None

PATIENT
  Age: 62 Year
  Sex: Male
  Weight: 172.37 kg

DRUGS (1)
  1. VICTOZA 18/MG/3ML NOVO NORDISK A/S [Suspect]
     Indication: TYPE 2 DIABETES MELLITUS
     Dosage: 1.2 MG ?ONCE DAILY?GIVEN INTO/UNDER THE SKIN
     Dates: start: 20131001, end: 20131108

REACTIONS (4)
  - Abdominal pain upper [None]
  - Urinary tract infection [None]
  - Pain [None]
  - Nephrolithiasis [None]
